FAERS Safety Report 11596561 (Version 1)
Quarter: 2015Q4

REPORT INFORMATION
  Report Type: Spontaneous
  Country: DE (occurrence: DE)
  Receive Date: 20151006
  Receipt Date: 20151006
  Transmission Date: 20160304
  Serious: Yes (Other)
  Sender: FDA-Public Use
  Company Number: PHHY2015DE118907

PATIENT
  Age: 31 Year
  Sex: Male

DRUGS (1)
  1. ZOLPIDEM [Suspect]
     Active Substance: ZOLPIDEM\ZOLPIDEM TARTRATE
     Indication: PRODUCT USED FOR UNKNOWN INDICATION
     Dosage: 10 MG, UNK
     Route: 065

REACTIONS (10)
  - Stress [Unknown]
  - Anxiety [Unknown]
  - Vomiting [Unknown]
  - Attention deficit/hyperactivity disorder [Unknown]
  - Somnambulism [Unknown]
  - Malaise [Unknown]
  - Thirst [Unknown]
  - Sleep disorder [Unknown]
  - Toxicity to various agents [Unknown]
  - Depression [Unknown]
